FAERS Safety Report 25370124 (Version 1)
Quarter: 2025Q2

REPORT INFORMATION
  Report Type: Spontaneous
  Country: IL (occurrence: IL)
  Receive Date: 20250528
  Receipt Date: 20250528
  Transmission Date: 20250716
  Serious: Yes (Other)
  Sender: GILEAD
  Company Number: IL-GILEAD-2025-0714583

PATIENT
  Age: 75 Year
  Sex: Female

DRUGS (3)
  1. YESCARTA [Suspect]
     Active Substance: AXICABTAGENE CILOLEUCEL
     Indication: B-cell lymphoma
     Route: 065
  2. FLUDARABINE [Concomitant]
     Active Substance: FLUDARABINE PHOSPHATE
  3. CYCLOPHOSPHAMIDE [Concomitant]
     Active Substance: CYCLOPHOSPHAMIDE

REACTIONS (4)
  - Septic shock [Unknown]
  - Acute respiratory distress syndrome [Unknown]
  - Immune effector cell-associated haematotoxicity [Unknown]
  - Cytokine release syndrome [Recovered/Resolved]
